FAERS Safety Report 6554894-4 (Version None)
Quarter: 2010Q1

REPORT INFORMATION
  Report Type: 
  Country: None (occurrence: None)
  Receive Date: 20100125
  Receipt Date: 20100113
  Transmission Date: 20100710
  Serious: Yes (Death)
  Sender: FDA-Public Use
  Company Number: CIO09020051

PATIENT
  Age: 82 Year
  Sex: Female
  Weight: 39.9 kg

DRUGS (9)
  1. PEPTO-BISMOL ORIGINAL FORMULA, ORIGINAL FLAVOR (BISMUTH SUSALCYLATE 26 [Suspect]
     Indication: COELIAC DISEASE
     Dosage: 2 TBSP, 1/DAY, ORAL
     Route: 048
     Dates: start: 19890101
  2. CARDIAC THIERAPY [Concomitant]
  3. ANTI-ASTHMATICS [Concomitant]
  4. SYNTHROID [Concomitant]
  5. GLAUCOMA DROPS [Concomitant]
  6. VITAMINS [Concomitant]
  7. LOMOTIL [Concomitant]
  8. DIOVAN [Concomitant]
  9. VITAMIN D [Concomitant]

REACTIONS (8)
  - CONDITION AGGRAVATED [None]
  - DEAFNESS [None]
  - EPISTAXIS [None]
  - GASTROINTESTINAL HAEMORRHAGE [None]
  - GINGIVAL BLEEDING [None]
  - MYOCARDIAL INFARCTION [None]
  - POST PROCEDURAL COMPLICATION [None]
  - SEPSIS [None]
